APPROVED DRUG PRODUCT: VALPROIC ACID
Active Ingredient: VALPROIC ACID
Strength: 250MG/5ML
Dosage Form/Route: SYRUP;ORAL
Application: A075379 | Product #001 | TE Code: AA
Applicant: PHARMACEUTICAL ASSOCIATES INC
Approved: Dec 15, 2000 | RLD: No | RS: Yes | Type: RX